FAERS Safety Report 12476144 (Version 1)
Quarter: 2016Q2

REPORT INFORMATION
  Report Type: Spontaneous
  Country: US (occurrence: US)
  Receive Date: 20160617
  Receipt Date: 20160617
  Transmission Date: 20160815
  Serious: Yes (Other)
  Sender: FDA-Public Use
  Company Number: US-ELI_LILLY_AND_COMPANY-US201606004404

PATIENT
  Sex: Male

DRUGS (1)
  1. ALIMTA [Suspect]
     Active Substance: PEMETREXED DISODIUM
     Indication: NON-SMALL CELL LUNG CANCER
     Dosage: 1000 MG, CYCLICAL
     Route: 065
     Dates: start: 20150624

REACTIONS (2)
  - Weight increased [Not Recovered/Not Resolved]
  - Hypertension [Not Recovered/Not Resolved]
